FAERS Safety Report 19383925 (Version 1)
Quarter: 2021Q2

REPORT INFORMATION
  Report Type: Report from Study
  Country: ER (occurrence: ER)
  Receive Date: 20210607
  Receipt Date: 20210607
  Transmission Date: 20210717
  Serious: Yes (Other)
  Sender: FDA-Public Use
  Company Number: ER-GLAXOSMITHKLINE-ERCH2021GSK035668

PATIENT
  Sex: Female

DRUGS (2)
  1. DICLOFENAC [Suspect]
     Active Substance: DICLOFENAC
     Indication: PRODUCT USED FOR UNKNOWN INDICATION
     Dosage: UNK
     Route: 054
  2. BUPIVACAINE. [Suspect]
     Active Substance: BUPIVACAINE
     Indication: DELIVERY
     Dosage: UNK
     Route: 008

REACTIONS (3)
  - Exposure during pregnancy [Unknown]
  - Rhabdomyolysis [Recovered/Resolved]
  - Live birth [Unknown]
